FAERS Safety Report 9535937 (Version 1)
Quarter: 2013Q3

REPORT INFORMATION
  Report Type: Spontaneous
  Country: US (occurrence: None)
  Receive Date: 20130917
  Receipt Date: 20130917
  Transmission Date: 20140515
  Serious: No
  Sender: FDA-Public Use
  Company Number: None

PATIENT
  Age: 61 Year
  Sex: Female

DRUGS (1)
  1. MYCOPHENOLATE [Suspect]
     Route: 048
     Dates: start: 20130915

REACTIONS (3)
  - Insomnia [None]
  - Palpitations [None]
  - Dizziness [None]
